FAERS Safety Report 18267420 (Version 1)
Quarter: 2020Q3

REPORT INFORMATION
  Report Type: Spontaneous
  Country: CA (occurrence: CA)
  Receive Date: 20200915
  Receipt Date: 20200915
  Transmission Date: 20201103
  Serious: Yes (Hospitalization)
  Sender: FDA-Public Use
  Company Number: CA-TEVA-2020-CA-1826909

PATIENT
  Age: 77 Year
  Sex: Female

DRUGS (21)
  1. COLACE [Concomitant]
     Active Substance: DOCUSATE SODIUM
  2. FLOVENT [Concomitant]
     Active Substance: FLUTICASONE PROPIONATE
  3. SYNTHROID [Concomitant]
     Active Substance: LEVOTHYROXINE SODIUM
  4. VALSARTAN. [Concomitant]
     Active Substance: VALSARTAN
  5. LANSOPRAZOLE. [Concomitant]
     Active Substance: LANSOPRAZOLE
  6. NITROGLYCERIN. [Concomitant]
     Active Substance: NITROGLYCERIN
  7. XARELTO [Concomitant]
     Active Substance: RIVAROXABAN
  8. ATIVAN [Concomitant]
     Active Substance: LORAZEPAM
  9. ATORVASTATIN [Concomitant]
     Active Substance: ATORVASTATIN
  10. HYDROCHLOROTHIAZIDE. [Concomitant]
     Active Substance: HYDROCHLOROTHIAZIDE
  11. PRONESTYL [Concomitant]
     Active Substance: PROCAINAMIDE HYDROCHLORIDE
  12. SALBUTAMOL [Concomitant]
     Active Substance: ALBUTEROL
  13. VITAMIN D [Concomitant]
     Active Substance: VITAMIN D NOS
  14. BISOPROLOL [Concomitant]
     Active Substance: BISOPROLOL
  15. FORXIGA [Concomitant]
     Active Substance: DAPAGLIFLOZIN
  16. TEVA?DILTIAZEM [Suspect]
     Active Substance: DILTIAZEM
     Indication: ATRIAL FIBRILLATION
     Dosage: 120 MILLIGRAM DAILY;
     Route: 048
  17. AMLODIPINE [Concomitant]
     Active Substance: AMLODIPINE BESYLATE
  18. ASPIRIN. [Concomitant]
     Active Substance: ASPIRIN
  19. HYDROXYZINE [Concomitant]
     Active Substance: HYDROXYZINE HYDROCHLORIDE
  20. ACETAMINOPHEN. [Concomitant]
     Active Substance: ACETAMINOPHEN
  21. METFORMIN [Concomitant]
     Active Substance: METFORMIN HYDROCHLORIDE

REACTIONS (4)
  - Fluid overload [Unknown]
  - Pulmonary oedema [Unknown]
  - Pyrexia [Unknown]
  - Oxygen saturation decreased [Unknown]
